FAERS Safety Report 19151743 (Version 1)
Quarter: 2021Q2

REPORT INFORMATION
  Report Type: Spontaneous
  Country: US (occurrence: US)
  Receive Date: 20210419
  Receipt Date: 20210419
  Transmission Date: 20210717
  Serious: Yes (Hospitalization)
  Sender: FDA-Public Use
  Company Number: US-LUPIN PHARMACEUTICALS INC.-2021-04770

PATIENT
  Age: 42 Year
  Sex: Male

DRUGS (11)
  1. ZOLEDRONIC ACID [Concomitant]
     Active Substance: ZOLEDRONIC ACID
     Indication: SPINAL CORD COMPRESSION
     Dosage: UNK
     Route: 065
  2. LORAZEPAM. [Suspect]
     Active Substance: LORAZEPAM
     Indication: DELIRIUM
     Dosage: 5 MILLIGRAM, QID
     Route: 042
  3. HALOPERIDOL. [Suspect]
     Active Substance: HALOPERIDOL
     Indication: DELIRIUM
     Dosage: 5 MILLIGRAM, QID
     Route: 042
  4. HYDROMORPHONE [Suspect]
     Active Substance: HYDROMORPHONE
     Indication: SPINAL CORD COMPRESSION
     Dosage: UNK, 4?8 MG EVERY 4 H AS NEEDED
     Route: 048
  5. FENTANYL. [Suspect]
     Active Substance: FENTANYL
     Indication: TUMOUR PAIN
  6. METHADONE [Suspect]
     Active Substance: METHADONE HYDROCHLORIDE
     Indication: SPINAL CORD COMPRESSION
     Dosage: UNK
     Route: 065
  7. METHADONE [Suspect]
     Active Substance: METHADONE HYDROCHLORIDE
     Indication: TUMOUR PAIN
  8. DEXAMETHASONE. [Suspect]
     Active Substance: DEXAMETHASONE
     Indication: SPINAL CORD COMPRESSION
     Dosage: UNK
     Route: 065
  9. FENTANYL. [Suspect]
     Active Substance: FENTANYL
     Indication: SPINAL CORD COMPRESSION
     Dosage: 125 MICROGRAM, PATCH
     Route: 061
  10. DEXAMETHASONE. [Suspect]
     Active Substance: DEXAMETHASONE
     Indication: TUMOUR PAIN
  11. HYDROMORPHONE [Suspect]
     Active Substance: HYDROMORPHONE
     Indication: TUMOUR PAIN

REACTIONS (1)
  - Drug ineffective [Unknown]
